FAERS Safety Report 7130306-7 (Version None)
Quarter: 2010Q4

REPORT INFORMATION
  Report Type: 
  Country: None (occurrence: None)
  Receive Date: 20101116
  Receipt Date: 20101105
  Transmission Date: 20110411
  Serious: Yes (Hospitalization)
  Sender: FDA-Public Use
  Company Number: 015846

PATIENT
  Sex: Male
  Weight: 60 kg

DRUGS (8)
  1. VIMPAT [Suspect]
     Indication: PARTIAL SEIZURES
     Dosage: SEE IMAGE
     Route: 048
     Dates: start: 20100707, end: 20100701
  2. VIMPAT [Suspect]
     Indication: PARTIAL SEIZURES
     Dosage: SEE IMAGE
     Route: 048
     Dates: start: 20100527, end: 20100706
  3. VIMPAT [Suspect]
     Indication: PARTIAL SEIZURES
     Dosage: SEE IMAGE
     Route: 048
     Dates: start: 20100714, end: 20100714
  4. VIMPAT [Suspect]
     Indication: PARTIAL SEIZURES
     Dosage: SEE IMAGE
     Route: 048
     Dates: end: 20100804
  5. VIMPAT [Suspect]
     Indication: PARTIAL SEIZURES
     Dosage: SEE IMAGE
     Route: 048
     Dates: start: 20100715
  6. SABRIL [Concomitant]
  7. LAMOTRIGINE [Concomitant]
  8. TRILEPTAL [Concomitant]

REACTIONS (6)
  - BALANCE DISORDER [None]
  - DRUG LEVEL INCREASED [None]
  - NAUSEA [None]
  - VERTIGO [None]
  - VISION BLURRED [None]
  - VOMITING [None]
